FAERS Safety Report 7781716-6 (Version None)
Quarter: 2011Q3

REPORT INFORMATION
  Report Type: 
  Country: None (occurrence: None)
  Receive Date: 20110927
  Receipt Date: 20110922
  Transmission Date: 20111222
  Serious: Yes (Hospitalization)
  Sender: FDA-Public Use
  Company Number: US-GLAXOSMITHKLINE-A0878979A

PATIENT
  Age: 65 Year
  Sex: Male

DRUGS (2)
  1. AVANDAMET [Suspect]
     Indication: DIABETES MELLITUS
     Dosage: 1TAB PER DAY
     Dates: start: 20070101, end: 20080101
  2. AVANDIA [Suspect]
     Indication: DIABETES MELLITUS
     Dates: start: 20030101, end: 20060101

REACTIONS (1)
  - MYOCARDIAL INFARCTION [None]
